FAERS Safety Report 6890252-0 (Version None)
Quarter: 2010Q3

REPORT INFORMATION
  Report Type: 
  Country: None (occurrence: None)
  Receive Date: 20100730
  Receipt Date: 20080915
  Transmission Date: 20110219
  Serious: No
  Sender: FDA-Public Use
  Company Number: US-PFIZER INC-2008077455

PATIENT
  Sex: Female
  Weight: 56.7 kg

DRUGS (5)
  1. LIPITOR [Suspect]
     Indication: BLOOD CHOLESTEROL ABNORMAL
     Dates: start: 20080101, end: 20080901
  2. SYNTHROID [Concomitant]
     Indication: THYROID DISORDER
  3. ACCUPRIL [Concomitant]
  4. NORVASC [Concomitant]
  5. ZIAC [Concomitant]

REACTIONS (3)
  - ALOPECIA [None]
  - BLOOD CALCIUM ABNORMAL [None]
  - DRUG HYPERSENSITIVITY [None]
